FAERS Safety Report 20335754 (Version 2)
Quarter: 2022Q1

REPORT INFORMATION
  Report Type: Other
  Country: US (occurrence: None)
  Receive Date: 20220114
  Receipt Date: 20220315
  Transmission Date: 20220424
  Serious: Yes (Hospitalization)
  Sender: FDA-Public Use
  Company Number: US-ROCHE-2999968

PATIENT
  Age: 50 Year
  Sex: Female
  Weight: 108.96 kg

DRUGS (4)
  1. OCREVUS [Suspect]
     Active Substance: OCRELIZUMAB
     Indication: Relapsing multiple sclerosis
     Dosage: DATE OF TREATMENT : 02/FEB/2022, 29/JUL/2021, 26/JAN/2021, 07/FEB/2020, 23/JUL/2020, 26/JUL/2019
     Route: 042
     Dates: start: 20190726
  2. OCREVUS [Suspect]
     Active Substance: OCRELIZUMAB
     Route: 042
     Dates: start: 2018
  3. WELLBUTRIN [Concomitant]
     Active Substance: BUPROPION HYDROCHLORIDE
     Indication: Anxiety
     Dosage: YES
     Route: 048
     Dates: start: 2009
  4. SEROQUEL [Concomitant]
     Active Substance: QUETIAPINE FUMARATE
     Dosage: AT NIGHT?INDICATION - HARD TIME SLEEPING
     Route: 048
     Dates: start: 2012

REACTIONS (3)
  - COVID-19 pneumonia [Recovered/Resolved with Sequelae]
  - Dyspnoea [Recovered/Resolved]
  - Facial spasm [Not Recovered/Not Resolved]

NARRATIVE: CASE EVENT DATE: 20210801
